FAERS Safety Report 21385022 (Version 4)
Quarter: 2023Q2

REPORT INFORMATION
  Report Type: Report from Study
  Country: DE (occurrence: DE)
  Receive Date: 20220928
  Receipt Date: 20230421
  Transmission Date: 20230721
  Serious: Yes (Hospitalization)
  Sender: FDA-Public Use
  Company Number: DE-LEO Pharma-345650

PATIENT
  Age: 48 Year
  Sex: Male
  Weight: 117 kg

DRUGS (12)
  1. TRALOKINUMAB [Suspect]
     Active Substance: TRALOKINUMAB
     Indication: Dermatitis atopic
     Route: 058
     Dates: start: 20220809, end: 20220907
  2. TRALOKINUMAB [Suspect]
     Active Substance: TRALOKINUMAB
     Indication: Dermatitis atopic
     Route: 058
     Dates: start: 20220809, end: 20220907
  3. TRALOKINUMAB [Suspect]
     Active Substance: TRALOKINUMAB
     Indication: Dermatitis atopic
     Route: 058
     Dates: start: 20220809, end: 20220907
  4. TRALOKINUMAB [Suspect]
     Active Substance: TRALOKINUMAB
     Indication: Dermatitis atopic
     Route: 058
     Dates: start: 20220809, end: 20220907
  5. Admantan cream 0.1 % [Concomitant]
     Indication: Dermatitis atopic
     Dosage: AS NEEDED
     Route: 003
     Dates: start: 20220927
  6. DEVICE [Suspect]
     Active Substance: DEVICE
     Indication: Dermatitis atopic
  7. RUPATADINE FUMARATE [Concomitant]
     Active Substance: RUPATADINE FUMARATE
     Indication: Dermatitis atopic
     Dosage: AS NEEDED. DISCONTINUED DUE TO LOSS OF EFFECT
     Route: 048
     Dates: start: 202109, end: 20220915
  8. PREDNISOLONE [Concomitant]
     Active Substance: PREDNISOLONE
     Indication: Dermatitis atopic
     Dosage: ONCE, ONLY ONE-TIME GIFT PLANNED
     Route: 042
     Dates: start: 20220919, end: 20220919
  9. LEVOCETIRIZINE DIHYDROCHLORIDE [Concomitant]
     Active Substance: LEVOCETIRIZINE DIHYDROCHLORIDE
     Indication: Dermatitis atopic
     Route: 048
     Dates: start: 20220920
  10. DIMETHINDENE MALEATE [Concomitant]
     Active Substance: DIMETHINDENE MALEATE
     Indication: Dermatitis atopic
     Dosage: ONCE
     Route: 042
     Dates: start: 20220919, end: 20220919
  11. BETAMETHASONE DIPROPIONATE\GENTAMICIN SULFATE [Concomitant]
     Active Substance: BETAMETHASONE DIPROPIONATE\GENTAMICIN SULFATE
     Indication: Dermatitis atopic
     Dosage: DISCONTINUED AS PER IMPROVEMENT IN SKIN CONDITION.
     Route: 003
     Dates: start: 202012, end: 20220926
  12. DUPIXENT [Concomitant]
     Active Substance: DUPILUMAB
     Indication: Dermatitis atopic
     Route: 058
     Dates: start: 20220923

REACTIONS (8)
  - Diarrhoea [Recovered/Resolved]
  - Nasopharyngitis [Recovered/Resolved]
  - Dermatitis atopic [Recovered/Resolved]
  - Diarrhoea [Recovered/Resolved]
  - Nasopharyngitis [Recovered/Resolved]
  - Conjunctivitis allergic [Not Recovered/Not Resolved]
  - Dermatitis atopic [Recovered/Resolved]
  - Conjunctivitis allergic [Not Recovered/Not Resolved]

NARRATIVE: CASE EVENT DATE: 20220815
